FAERS Safety Report 7110739-5 (Version None)
Quarter: 2010Q4

REPORT INFORMATION
  Report Type: 
  Country: None (occurrence: None)
  Receive Date: 20101118
  Receipt Date: 20101116
  Transmission Date: 20110411
  Serious: Yes (Other)
  Sender: FDA-Public Use
  Company Number: A0893074A

PATIENT
  Age: 40 Year
  Sex: Female

DRUGS (4)
  1. PAXIL [Suspect]
     Indication: ANXIETY
     Route: 048
  2. SERTRALINE HYDROCHLORIDE [Suspect]
     Indication: ANXIETY
     Route: 065
  3. RITALIN [Suspect]
     Route: 065
  4. ZOLOFT [Suspect]
     Indication: ANXIETY
     Route: 065

REACTIONS (1)
  - SMALL INTESTINE CARCINOMA [None]
